FAERS Safety Report 4958812-1 (Version None)
Quarter: 2006Q1

REPORT INFORMATION
  Report Type: 
  Country: None (occurrence: None)
  Receive Date: 20060324
  Receipt Date: 20060314
  Transmission Date: 20060701
  Serious: Yes (Hospitalization)
  Sender: FDA-Public Use
  Company Number: 2006035751

PATIENT
  Age: 13 Year
  Sex: Female

DRUGS (1)
  1. DEXTROMETHORPHAN (DEXTROMETHORPHAN) [Suspect]
     Dosage: 20 TABLETS ONCE, ORAL
     Route: 048

REACTIONS (7)
  - AGITATION [None]
  - BODY TEMPERATURE DECREASED [None]
  - CONFUSIONAL STATE [None]
  - HEART RATE INCREASED [None]
  - OVERDOSE [None]
  - RESPIRATORY RATE INCREASED [None]
  - SOMNOLENCE [None]
